FAERS Safety Report 23205397 (Version 8)
Quarter: 2024Q3

REPORT INFORMATION
  Report Type: Spontaneous
  Country: US (occurrence: US)
  Receive Date: 20231120
  Receipt Date: 20240904
  Transmission Date: 20241017
  Serious: No
  Sender: PFIZER
  Company Number: US-PFIZER INC-PV202300161148

PATIENT
  Age: 94 Year
  Sex: Female
  Weight: 61.678 kg

DRUGS (3)
  1. IBRANCE [Suspect]
     Active Substance: PALBOCICLIB
     Indication: Breast cancer female
     Dosage: 75 MG, CYCLIC (TAKE 1 TABLET ONCE DAILY TAKEN WITH OR WITHOUT FOOD FOR 21DAYS FOLLOWED BY 7DAYS OFF)
     Route: 048
     Dates: start: 2021
  2. IBRANCE [Suspect]
     Active Substance: PALBOCICLIB
     Dosage: 75 MG, CYCLIC (TAKE 1 TABLET ONCE DAILY TAKEN WITH OR WITHOUT FOOD FOR 21DAYS FOLLOWED BY 7DAYS OFF)
     Route: 048
  3. LETROZOLE [Concomitant]
     Active Substance: LETROZOLE
     Dosage: 2.5 MG, DAILY
     Dates: start: 2021

REACTIONS (2)
  - COVID-19 [Unknown]
  - Hypoacusis [Not Recovered/Not Resolved]
